FAERS Safety Report 12005090 (Version 2)
Quarter: 2016Q1

REPORT INFORMATION
  Report Type: Spontaneous
  Country: AT (occurrence: AT)
  Receive Date: 20160204
  Receipt Date: 20160208
  Transmission Date: 20160526
  Serious: Yes (Death, Hospitalization, Other)
  Sender: FDA-Public Use
  Company Number: AT-B.I. PHARMACEUTICALS,INC./RIDGEFIELD-2016-BI-06999BE

PATIENT
  Age: 65 Year
  Sex: Male
  Weight: 67 kg

DRUGS (8)
  1. GILOTRIF [Suspect]
     Active Substance: AFATINIB
     Indication: TONGUE NEOPLASM MALIGNANT STAGE UNSPECIFIED
     Dosage: 40 MG
     Route: 048
     Dates: start: 20160127
  2. NOVALGIN [Concomitant]
     Active Substance: METAMIZOLE SODIUM
     Indication: PAIN
     Route: 065
     Dates: start: 20150210, end: 20160202
  3. CONCOR [Concomitant]
     Active Substance: BISOPROLOL FUMARATE
     Indication: HYPERTENSION
     Dosage: 1.25 MG
     Route: 065
     Dates: start: 2015, end: 20160202
  4. FRAGMIN [Concomitant]
     Active Substance: DALTEPARIN SODIUM
     Indication: ATRIAL FIBRILLATION
     Dosage: 5000 U
     Route: 065
     Dates: start: 2015, end: 20160202
  5. LAFENE [Concomitant]
     Indication: PAIN
     Dosage: 8.3333 MCG
     Route: 065
     Dates: start: 2015, end: 20160202
  6. HYDAL [Concomitant]
     Active Substance: HYDROMORPHONE HYDROCHLORIDE
     Indication: PAIN
     Route: 065
     Dates: start: 2015, end: 20160202
  7. PASPERTIN [Concomitant]
     Active Substance: METOCLOPRAMIDE HYDROCHLORIDE
     Indication: NAUSEA
     Route: 065
     Dates: start: 2015, end: 20160202
  8. MINOSTAD [Concomitant]
     Indication: PROPHYLAXIS
     Dosage: 50 MG
     Route: 065
     Dates: start: 2015, end: 20160202

REACTIONS (6)
  - Syncope [Recovered/Resolved]
  - Off label use [Unknown]
  - Tongue neoplasm malignant stage unspecified [Fatal]
  - Hyperuricaemia [Not Recovered/Not Resolved]
  - Cardiopulmonary failure [Fatal]
  - Haemoptysis [Not Recovered/Not Resolved]

NARRATIVE: CASE EVENT DATE: 20160127
